FAERS Safety Report 8018519-3 (Version None)
Quarter: 2012Q1

REPORT INFORMATION
  Report Type: 
  Country: None (occurrence: None)
  Receive Date: 20120103
  Receipt Date: 20111219
  Transmission Date: 20120608
  Serious: Yes (Life-Threatening, Hospitalization, Other)
  Sender: FDA-Public Use
  Company Number: DE-PFIZER INC-2011276748

PATIENT
  Age: 36 Year
  Sex: Male
  Weight: 123 kg

DRUGS (10)
  1. ALLOPURINOL [Concomitant]
     Dosage: 100 MG, 1X/DAY
     Route: 048
     Dates: start: 20090601, end: 20110111
  2. FUROSEMIDE [Concomitant]
     Dosage: (40 MG TABLETS) 50 MG
     Route: 048
     Dates: start: 20101025, end: 20101206
  3. ALLOPURINOL [Concomitant]
     Dosage: 300 MG, 1X/DAY
     Route: 048
     Dates: start: 20110112, end: 20110114
  4. SPIRONOLACTONE [Concomitant]
     Dosage: 25 MG, 1X/DAY
     Route: 048
     Dates: start: 20101215, end: 20110111
  5. LOPERAMIDE [Concomitant]
     Dosage: 2 MG TABLETS DAILY
     Route: 048
     Dates: start: 20100101, end: 20110601
  6. SIMVASTATIN [Concomitant]
     Dosage: 40 MG, 1X/DAY
     Route: 048
     Dates: start: 20101215
  7. RAMIPRIL [Concomitant]
     Dosage: 5 MG, 1X/DAY
     Route: 048
     Dates: start: 20090201, end: 20110112
  8. PANTOPRAZOLE [Suspect]
     Dosage: 20 MG, 2X/DAY
     Route: 048
     Dates: start: 20101215, end: 20110111
  9. FUROSEMIDE [Concomitant]
     Dosage: UNK
     Route: 048
     Dates: start: 20101207, end: 20110111
  10. AMLODIPINE [Concomitant]
     Dosage: 5 MG, 2X/DAY
     Route: 048
     Dates: start: 20101206

REACTIONS (2)
  - RENAL FAILURE ACUTE [None]
  - TUBULOINTERSTITIAL NEPHRITIS [None]
